FAERS Safety Report 18374949 (Version 1)
Quarter: 2020Q4

REPORT INFORMATION
  Report Type: Spontaneous
  Country: SI (occurrence: SI)
  Receive Date: 20201013
  Receipt Date: 20201013
  Transmission Date: 20210114
  Serious: Yes (Other)
  Sender: FDA-Public Use
  Company Number: SI-TEVA-2020-SI-1836994

PATIENT
  Age: 54 Year
  Sex: Female

DRUGS (5)
  1. PACLITAXIN 6 MG/ML [Suspect]
     Active Substance: PACLITAXEL
     Indication: OVARIAN CANCER
     Dosage: 310MG, VIAL
     Route: 042
     Dates: start: 20200908, end: 20200908
  2. PANTOPRAZOLE SODIUM. [Concomitant]
     Active Substance: PANTOPRAZOLE SODIUM
     Dosage: 20MG
  3. HELEX 0,25 MG [Concomitant]
     Dosage: 0.25MG
  4. ANALGIN [Concomitant]
  5. REGLAN 10 MG [Concomitant]
     Dosage: 10MG

REACTIONS (1)
  - Infusion related reaction [Recovered/Resolved]

NARRATIVE: CASE EVENT DATE: 20200908
